FAERS Safety Report 15114471 (Version 2)
Quarter: 2018Q3

REPORT INFORMATION
  Report Type: Spontaneous
  Country: US (occurrence: US)
  Receive Date: 20180706
  Receipt Date: 20180713
  Transmission Date: 20181010
  Serious: Yes (Other)
  Sender: FDA-Public Use
  Company Number: US-HORIZON-VIM-1047-2018

PATIENT
  Age: 57 Year
  Sex: Female

DRUGS (1)
  1. VIMOVO [Suspect]
     Active Substance: ESOMEPRAZOLE MAGNESIUM\NAPROXEN
     Indication: PRODUCT USED FOR UNKNOWN INDICATION
     Dosage: 1 TABLET TWICE A DAY
     Route: 048
     Dates: start: 201710, end: 201805

REACTIONS (1)
  - Kidney infection [Unknown]
